FAERS Safety Report 25988780 (Version 1)
Quarter: 2025Q4

REPORT INFORMATION
  Report Type: Spontaneous
  Country: US (occurrence: US)
  Receive Date: 20251103
  Receipt Date: 20251103
  Transmission Date: 20260117
  Serious: No
  Sender: RIGEL PHARMACEUTICALS
  Company Number: US-RIGEL Pharmaceuticals, INC-20241200042

PATIENT
  Sex: Female
  Weight: 38.102 kg

DRUGS (1)
  1. GAVRETO [Suspect]
     Active Substance: PRALSETINIB
     Indication: Lung neoplasm malignant
     Dosage: 300 MG, UNKNOWN FREQUENCY
     Route: 065
     Dates: start: 20241112, end: 2024

REACTIONS (10)
  - AST/ALT ratio abnormal [Recovering/Resolving]
  - Sputum discoloured [Unknown]
  - Nocturia [Unknown]
  - Pain [Unknown]
  - Hypersensitivity [Unknown]
  - Product prescribing issue [Unknown]
  - Paraesthesia [Unknown]
  - Fatigue [Recovering/Resolving]
  - Cough [Recovering/Resolving]
  - Dry mouth [Unknown]

NARRATIVE: CASE EVENT DATE: 20240101
